FAERS Safety Report 11048959 (Version 1)
Quarter: 2015Q2

REPORT INFORMATION
  Report Type: Spontaneous
  Country: BR (occurrence: BR)
  Receive Date: 20150420
  Receipt Date: 20150420
  Transmission Date: 20150821
  Serious: Yes (Life-Threatening, Other)
  Sender: FDA-Public Use
  Company Number: BR-ASTRAZENECA-2015SE35013

PATIENT
  Age: 69 Year
  Sex: Female
  Weight: 40 kg

DRUGS (10)
  1. COLLESTRA [Concomitant]
     Route: 048
  2. CLOPIDOGREL [Concomitant]
     Active Substance: CLOPIDOGREL BISULFATE
     Route: 048
  3. SELOZOK [Suspect]
     Active Substance: METOPROLOL SUCCINATE
     Route: 048
  4. EVOTAXEL [Suspect]
     Active Substance: PACLITAXEL
     Indication: GASTRIC CANCER
     Dosage: 110.116 MG DILUTED IN 250 ML OF SALINE SOLUTION 0.9% HALEX ISTAR, ONCE A WEEK
     Route: 065
     Dates: start: 20150223
  5. BENADRYL [Concomitant]
     Active Substance: DIPHENHYDRAMINE HYDROCHLORIDE
     Indication: PROPHYLAXIS
     Dosage: 50 MG/100 ML OF PHYSIOLOGIC SALINE SOLUTION (30 MINUTES)
  6. DEXAMETHASONE. [Concomitant]
     Active Substance: DEXAMETHASONE
     Indication: PROPHYLAXIS
  7. RANITIDINE [Concomitant]
     Active Substance: RANITIDINE\RANITIDINE HYDROCHLORIDE
     Indication: PROPHYLAXIS
  8. VASTAREL [Concomitant]
     Active Substance: TRIMETAZIDINE DIHYDROCHLORIDE
     Route: 048
  9. ONDASENTRON [Concomitant]
     Indication: PROPHYLAXIS
  10. VONAU [Concomitant]
     Dosage: AS REQUIRED
     Route: 048

REACTIONS (3)
  - Oxygen saturation decreased [Unknown]
  - Gastric cancer [Unknown]
  - Anaphylactic reaction [Recovered/Resolved]

NARRATIVE: CASE EVENT DATE: 20150223
